FAERS Safety Report 7674287-6 (Version None)
Quarter: 2011Q3

REPORT INFORMATION
  Report Type: 
  Country: None (occurrence: None)
  Receive Date: 20110808
  Receipt Date: 20110726
  Transmission Date: 20111222
  Serious: Yes (Hospitalization, Other)
  Sender: FDA-Public Use
  Company Number: 2011ST000138

PATIENT
  Age: 13 Year
  Sex: Female
  Weight: 43.5 kg

DRUGS (25)
  1. DOXORUBICIN HCL [Concomitant]
  2. ONCASPAR [Suspect]
     Indication: ACUTE LYMPHOCYTIC LEUKAEMIA
     Dosage: 3375 IU X1 IV 3300 IU X1 IV 168.75 IU X1 IV
     Route: 042
     Dates: start: 20110603, end: 20110603
  3. ONCASPAR [Suspect]
     Indication: ACUTE LYMPHOCYTIC LEUKAEMIA
     Dosage: 3375 IU X1 IV 3300 IU X1 IV 168.75 IU X1 IV
     Route: 042
     Dates: start: 20110214, end: 20110214
  4. ONCASPAR [Suspect]
     Indication: ACUTE LYMPHOCYTIC LEUKAEMIA
     Dosage: 3375 IU X1 IV 3300 IU X1 IV 168.75 IU X1 IV
     Route: 042
     Dates: start: 20110103, end: 20110603
  5. VINCRISTINE [Suspect]
     Indication: ACUTE LYMPHOCYTIC LEUKAEMIA
     Dosage: 8MG IV
     Route: 042
     Dates: end: 20110718
  6. PREVACID [Concomitant]
  7. KYTRIL [Concomitant]
  8. REGLAN [Concomitant]
  9. THIOGUANINE [Concomitant]
  10. MERCAPTOPURINE [Suspect]
     Indication: ACUTE LYMPHOCYTIC LEUKAEMIA
     Dosage: 900 MG, PO
     Route: 048
     Dates: end: 20110417
  11. METHOTREXATE [Suspect]
     Indication: ACUTE LYMPHOCYTIC LEUKAEMIA
     Dosage: 13200 MG IV INTH 15 MG X1 INTH 15 MG X1 INTH 15 MG X1 INTH
     Route: 042
     Dates: start: 20110705, end: 20110705
  12. METHOTREXATE [Suspect]
     Indication: ACUTE LYMPHOCYTIC LEUKAEMIA
     Dosage: 13200 MG IV INTH 15 MG X1 INTH 15 MG X1 INTH 15 MG X1 INTH
     Route: 042
     Dates: end: 20110404
  13. METHOTREXATE [Suspect]
     Indication: ACUTE LYMPHOCYTIC LEUKAEMIA
     Dosage: 13200 MG IV INTH 15 MG X1 INTH 15 MG X1 INTH 15 MG X1 INTH
     Route: 042
     Dates: start: 20110531, end: 20110531
  14. METHOTREXATE [Suspect]
     Indication: ACUTE LYMPHOCYTIC LEUKAEMIA
     Dosage: 13200 MG IV INTH 15 MG X1 INTH 15 MG X1 INTH 15 MG X1 INTH
     Route: 042
     Dates: start: 20110712, end: 20110712
  15. METHOTREXATE [Suspect]
     Indication: ACUTE LYMPHOCYTIC LEUKAEMIA
     Dosage: 13200 MG IV INTH 15 MG X1 INTH 15 MG X1 INTH 15 MG X1 INTH
     Route: 042
     Dates: end: 20110404
  16. FENTANYL [Concomitant]
  17. ERWINIA [Suspect]
     Indication: ACUTE LYMPHOCYTIC LEUKAEMIA
     Dosage: 237000 IU
     Dates: start: 20110607, end: 20110718
  18. BACTRIM [Concomitant]
  19. VERSED [Concomitant]
  20. ZOFRAN [Concomitant]
  21. DEXAMETHASONE [Concomitant]
  22. MARINOL [Concomitant]
  23. TYLENOL-500 [Concomitant]
  24. CYCLOPHOSPHAMIDE [Concomitant]
  25. CYTARABINE [Concomitant]

REACTIONS (9)
  - THROMBOCYTOPENIA [None]
  - SINUS HEADACHE [None]
  - ANAEMIA [None]
  - COAGULOPATHY [None]
  - HEADACHE [None]
  - NASAL CONGESTION [None]
  - SINUSITIS [None]
  - ANAPHYLACTIC REACTION [None]
  - ISCHAEMIC CEREBRAL INFARCTION [None]
